FAERS Safety Report 7531322 (Version 15)
Quarter: 2013Q2

REPORT INFORMATION
  Report Type: Spontaneous
  Country: CA (occurrence: CA)
  Receive Date: 20100806
  Receipt Date: 20130612
  Transmission Date: 20140414
  Serious: Yes (Hospitalization, Other)
  Sender: FDA-Public Use
  Company Number: CA-ROCHE-GNE304866

PATIENT
  Age: 62 Year
  Sex: Female

DRUGS (15)
  1. XOLAIR [Suspect]
     Indication: ASTHMA
     Dosage: 300 MG, 1/MONTH
     Route: 058
     Dates: start: 20090826
  2. XOLAIR [Suspect]
     Indication: BRONCHITIS
     Dosage: 300 MG, 1/MONTH
     Route: 058
     Dates: start: 20090922
  3. VENTOLIN [Concomitant]
     Indication: PRODUCT USED FOR UNKNOWN INDICATION
  4. APO-CAL [Concomitant]
     Indication: PRODUCT USED FOR UNKNOWN INDICATION
     Route: 045
  5. SINGULAIR [Concomitant]
     Indication: PRODUCT USED FOR UNKNOWN INDICATION
  6. LOSEC (CANADA) [Concomitant]
     Indication: PRODUCT USED FOR UNKNOWN INDICATION
  7. SYMBICORT [Concomitant]
     Indication: PRODUCT USED FOR UNKNOWN INDICATION
     Route: 055
  8. ALVESCO [Concomitant]
     Indication: PRODUCT USED FOR UNKNOWN INDICATION
  9. CYCLOBENZAPRINE [Concomitant]
     Indication: PRODUCT USED FOR UNKNOWN INDICATION
  10. LASIX [Concomitant]
     Indication: PRODUCT USED FOR UNKNOWN INDICATION
  11. NORVASC [Concomitant]
     Indication: PRODUCT USED FOR UNKNOWN INDICATION
  12. PREDNISONE [Concomitant]
     Indication: PRODUCT USED FOR UNKNOWN INDICATION
  13. ZESTRIL [Concomitant]
     Indication: PRODUCT USED FOR UNKNOWN INDICATION
  14. TRAMACET [Concomitant]
     Indication: PRODUCT USED FOR UNKNOWN INDICATION
  15. D-TUBOCURARINE [Concomitant]
     Indication: PRODUCT USED FOR UNKNOWN INDICATION

REACTIONS (18)
  - Myocardial infarction [Unknown]
  - Gastrointestinal haemorrhage [Unknown]
  - Atrial fibrillation [Unknown]
  - Pleural effusion [Unknown]
  - Chest pain [Unknown]
  - Lung infection [Unknown]
  - Pneumonia staphylococcal [Unknown]
  - Sepsis [Unknown]
  - Supraventricular tachycardia [Unknown]
  - Extrasystoles [Unknown]
  - Asthma [Unknown]
  - Volvulus [Unknown]
  - Abdominal pain [Recovered/Resolved]
  - Abdominal adhesions [Recovered/Resolved]
  - Haemoglobin decreased [Not Recovered/Not Resolved]
  - Nasopharyngitis [Recovering/Resolving]
  - Weight decreased [Unknown]
  - Colitis [Unknown]
